FAERS Safety Report 19171244 (Version 1)
Quarter: 2021Q2

REPORT INFORMATION
  Report Type: Report from Study
  Country: None (occurrence: CA)
  Receive Date: 20210423
  Receipt Date: 20210423
  Transmission Date: 20210717
  Serious: Yes (Other)
  Sender: FDA-Public Use
  Company Number: CA-ABBVIE-21K-028-3862778-00

PATIENT
  Sex: Female

DRUGS (1)
  1. HUMIRA [Suspect]
     Active Substance: ADALIMUMAB
     Indication: CROHN^S DISEASE
     Route: 058
     Dates: start: 20131228

REACTIONS (8)
  - Muscle spasms [Recovered/Resolved]
  - Endometriosis [Not Recovered/Not Resolved]
  - Maternal exposure during pregnancy [Unknown]
  - Postoperative adhesion [Unknown]
  - Pain [Recovered/Resolved]
  - Anal fissure [Recovered/Resolved]
  - Haemorrhage in pregnancy [Recovered/Resolved]
  - Abdominal distension [Recovered/Resolved]
